FAERS Safety Report 4976390-8 (Version None)
Quarter: 2006Q2

REPORT INFORMATION
  Report Type: 
  Country: None (occurrence: None)
  Receive Date: 20060412
  Receipt Date: 20060330
  Transmission Date: 20061013
  Serious: Yes (Other)
  Sender: FDA-Public Use
  Company Number: 2006033648

PATIENT
  Age: 79 Year
  Sex: Female
  Weight: 77.1115 kg

DRUGS (5)
  1. LIPITOR [Suspect]
     Indication: BLOOD CHOLESTEROL INCREASED
     Dosage: 40 MG (40 MG, 1 IN 1 D), ORAL
     Route: 048
     Dates: end: 20060101
  2. WARFARIN SODIUM [Concomitant]
  3. LANOXIN [Concomitant]
  4. CAPTOPRIL [Concomitant]
  5. HYDROXYZINE [Concomitant]

REACTIONS (11)
  - ABASIA [None]
  - ARTHRALGIA [None]
  - ARTHRITIS [None]
  - CHROMATURIA [None]
  - CONSTIPATION [None]
  - GLAUCOMA [None]
  - MUSCULAR WEAKNESS [None]
  - MYALGIA [None]
  - NAUSEA [None]
  - PHARYNGOLARYNGEAL PAIN [None]
  - VISUAL ACUITY REDUCED [None]
